FAERS Safety Report 6451489-8 (Version None)
Quarter: 2009Q4

REPORT INFORMATION
  Report Type: 
  Country: None (occurrence: None)
  Receive Date: 20091123
  Receipt Date: 20090601
  Transmission Date: 20100525
  Serious: No
  Sender: FDA-Public Use
  Company Number: US-BRISTOL-MYERS SQUIBB COMPANY-14644793

PATIENT
  Age: 79 Year
  Sex: Female
  Weight: 97 kg

DRUGS (2)
  1. AVALIDE [Suspect]
  2. VICODIN [Concomitant]

REACTIONS (2)
  - ARTHRALGIA [None]
  - MYALGIA [None]
